FAERS Safety Report 20671605 (Version 2)
Quarter: 2022Q2

REPORT INFORMATION
  Report Type: Report from Study
  Country: US (occurrence: US)
  Receive Date: 20220404
  Receipt Date: 20220515
  Transmission Date: 20220721
  Serious: Yes (Other)
  Sender: FDA-Public Use
  Company Number: US-ABBVIE-22K-163-4343552-00

PATIENT
  Age: 49 Year
  Sex: Male

DRUGS (1)
  1. SKYRIZI [Suspect]
     Active Substance: RISANKIZUMAB-RZAA
     Indication: Psoriasis
     Route: 058

REACTIONS (3)
  - Shoulder operation [Recovered/Resolved]
  - Shoulder operation [Unknown]
  - Pneumonia [Unknown]

NARRATIVE: CASE EVENT DATE: 20220301
